FAERS Safety Report 20584004 (Version 2)
Quarter: 2022Q2

REPORT INFORMATION
  Report Type: Spontaneous
  Country: US (occurrence: None)
  Receive Date: 20220311
  Receipt Date: 20220412
  Transmission Date: 20220720
  Serious: No
  Sender: FDA-Public Use
  Company Number: 2022A082106

PATIENT
  Sex: Female

DRUGS (1)
  1. SYMBICORT [Suspect]
     Active Substance: BUDESONIDE\FORMOTEROL FUMARATE DIHYDRATE
     Indication: Chronic obstructive pulmonary disease
     Dosage: 160, 20 INHALATIONS, 2 INHALATIONS TWICE A DAY
     Route: 055

REACTIONS (12)
  - Dyspnoea [Unknown]
  - Chest discomfort [Unknown]
  - Nervousness [Unknown]
  - Chest pain [Unknown]
  - Hypoacusis [Unknown]
  - Cough [Unknown]
  - Illness [Unknown]
  - Product dose omission issue [Unknown]
  - Device use issue [Unknown]
  - Drug delivery system issue [Unknown]
  - Intentional device misuse [Unknown]
  - Device malfunction [Unknown]
